FAERS Safety Report 18395299 (Version 4)
Quarter: 2020Q4

REPORT INFORMATION
  Report Type: Spontaneous
  Country: US (occurrence: US)
  Receive Date: 20201017
  Receipt Date: 20201203
  Transmission Date: 20210114
  Serious: Yes (Other)
  Sender: FDA-Public Use
  Company Number: US-AUROBINDO-AUR-APL-2020-052292

PATIENT
  Age: 70 Year

DRUGS (3)
  1. PREDNISONE. [Suspect]
     Active Substance: PREDNISONE
     Indication: DEAFNESS
     Dosage: UNK
     Route: 065
  2. VALACYCLOVIR HYDROCHLORIDE TABLETS 1G [Suspect]
     Active Substance: VALACYCLOVIR HYDROCHLORIDE
     Indication: DEAFNESS
     Dosage: UNK
     Route: 065
  3. ALLOPURINOL. [Concomitant]
     Active Substance: ALLOPURINOL
     Indication: PRODUCT USED FOR UNKNOWN INDICATION
     Dosage: UNK
     Route: 065

REACTIONS (5)
  - Choking [Unknown]
  - Dysphagia [Unknown]
  - Wrong technique in product usage process [Unknown]
  - Product size issue [Unknown]
  - Product coating issue [Unknown]
